FAERS Safety Report 17979070 (Version 1)
Quarter: 2020Q3

REPORT INFORMATION
  Report Type: Spontaneous
  Country: US (occurrence: US)
  Receive Date: 20200703
  Receipt Date: 20200703
  Transmission Date: 20201103
  Serious: Yes (Other)
  Sender: FDA-Public Use
  Company Number: US-TEVA-2020-US-1796616

PATIENT
  Sex: Male

DRUGS (1)
  1. BUSPIRONE HYDROCHLORIDE TEVA [Suspect]
     Active Substance: BUSPIRONE HYDROCHLORIDE
     Dosage: 3X DAILY
     Route: 065
     Dates: start: 2018

REACTIONS (9)
  - Feeling abnormal [Recovered/Resolved]
  - Syncope [Recovered/Resolved]
  - Tunnel vision [Recovered/Resolved]
  - Anxiety [Recovered/Resolved]
  - Monoplegia [Recovered/Resolved]
  - Feeling of despair [Recovered/Resolved]
  - Product quality issue [Unknown]
  - Vertigo [Recovered/Resolved]
  - Gait disturbance [Recovered/Resolved]

NARRATIVE: CASE EVENT DATE: 202005
